FAERS Safety Report 6587191-1 (Version None)
Quarter: 2010Q1

REPORT INFORMATION
  Report Type: 
  Country: None (occurrence: None)
  Receive Date: 20100217
  Receipt Date: 20090512
  Transmission Date: 20100710
  Serious: No
  Sender: FDA-Public Use
  Company Number: US-ALLERGAN-0905559US

PATIENT
  Age: 51 Year
  Sex: Male
  Weight: 73.923 kg

DRUGS (9)
  1. BOTOX [Suspect]
     Indication: MUSCLE SPASMS
     Dosage: 50 UNITS, SINGLE
     Route: 030
     Dates: start: 20081126, end: 20081126
  2. BOTOX [Suspect]
     Indication: PIRIFORMIS SYNDROME
     Dosage: UNK, SINGLE
     Route: 030
     Dates: start: 20080825, end: 20080825
  3. BOTOX [Suspect]
     Dosage: UNK, SINGLE
     Route: 030
     Dates: start: 20080409, end: 20080409
  4. BOTOX [Suspect]
     Dosage: UNK, SINGLE
     Route: 030
     Dates: start: 20071001, end: 20071001
  5. BOTOX [Suspect]
     Dosage: UNK, SINGLE
     Route: 030
     Dates: start: 20070701, end: 20070701
  6. GABAPENTIN [Concomitant]
     Dosage: 300 MG, QD
  7. FLEXERIL [Concomitant]
  8. MORPHINE [Concomitant]
     Dosage: 25 MG, QHS
  9. LISINOPRIL [Concomitant]

REACTIONS (1)
  - MUSCLE ATROPHY [None]
